FAERS Safety Report 16389935 (Version 2)
Quarter: 2024Q3

REPORT INFORMATION
  Report Type: Other
  Country: DE (occurrence: DE)
  Receive Date: 20190604
  Receipt Date: 20240828
  Transmission Date: 20241016
  Serious: Yes (Hospitalization)
  Sender: NOVA LABORATORIES
  Company Number: DE-RARE DISEASE THERAPEUTICS, INC.-2067772

PATIENT
  Sex: Male

DRUGS (15)
  1. PURIXAN [Suspect]
     Active Substance: MERCAPTOPURINE
     Indication: Acute lymphocytic leukaemia
     Route: 064
  2. CYTARABINE [Suspect]
     Active Substance: CYTARABINE
     Route: 064
  3. SODIUM CHLORIDE [Suspect]
     Active Substance: SODIUM CHLORIDE
  4. LEUCOVORIN CALCIUM [Suspect]
     Active Substance: LEUCOVORIN CALCIUM
     Route: 064
  5. ETOPOSIDE [Suspect]
     Active Substance: ETOPOSIDE
     Route: 064
  6. VINDESINE [Suspect]
     Active Substance: VINDESINE
     Route: 064
  7. MESNA [Suspect]
     Active Substance: MESNA
     Route: 064
  8. PEGASPARGASE [Suspect]
     Active Substance: PEGASPARGASE
     Route: 064
  9. RITUXIMAB [Suspect]
     Active Substance: RITUXIMAB
     Route: 064
  10. DAUNORUBICIN [Suspect]
     Active Substance: DAUNORUBICIN
     Route: 064
  11. CYCLOPHOSPHAMIDE [Suspect]
     Active Substance: CYCLOPHOSPHAMIDE
     Route: 064
  12. METHOTREXATE [Suspect]
     Active Substance: METHOTREXATE
     Route: 064
  13. VINCRISTINE [Suspect]
     Active Substance: VINCRISTINE
     Route: 064
  14. DEXAMETHASONE [Suspect]
     Active Substance: DEXAMETHASONE
     Route: 064
  15. GRANULOCYTE COLONY-STIMULATING FACTOR NOS [Suspect]
     Active Substance: GRANULOCYTE COLONY-STIMULATING FACTOR NOS
     Route: 064

REACTIONS (3)
  - Low birth weight baby [Recovered/Resolved]
  - Foetal exposure during pregnancy [Unknown]
  - Premature baby [Recovered/Resolved]
